FAERS Safety Report 4816888-6 (Version None)
Quarter: 2005Q4

REPORT INFORMATION
  Report Type: 
  Country: None (occurrence: None)
  Receive Date: 20051031
  Receipt Date: 20051031
  Transmission Date: 20060501
  Serious: Yes (Hospitalization)
  Sender: FDA-Public Use
  Company Number: None

PATIENT
  Age: 84 Year
  Sex: Male
  Weight: 46.9 kg

DRUGS (6)
  1. CLOMIPRAMINE [Suspect]
  2. PAROXETINE HCL [Suspect]
     Dosage: 20MGPO
     Route: 048
     Dates: start: 20050827, end: 20050828
  3. RANITIDINE HCL [Concomitant]
  4. LORAZEPAM [Concomitant]
  5. OXYBUTYNIN CHLORIDE [Concomitant]
  6. LACTULOSE [Concomitant]

REACTIONS (1)
  - TREMOR [None]
